FAERS Safety Report 17123485 (Version 1)
Quarter: 2019Q4

REPORT INFORMATION
  Report Type: Spontaneous
  Country: US (occurrence: US)
  Receive Date: 20191206
  Receipt Date: 20191206
  Transmission Date: 20200122
  Serious: No
  Sender: FDA-Public Use
  Company Number: US-ROCHE-2345155

PATIENT
  Age: 43 Year
  Sex: Female

DRUGS (7)
  1. OCREVUS [Suspect]
     Active Substance: OCRELIZUMAB
     Indication: RELAPSING MULTIPLE SCLEROSIS
     Dosage: ONGOING: YES
     Route: 042
     Dates: start: 20190115
  2. TEGRETOL [Concomitant]
     Active Substance: CARBAMAZEPINE
     Indication: SEIZURE
     Dosage: ONGOING YES
     Route: 048
     Dates: start: 20020101
  3. BACLOFEN. [Concomitant]
     Active Substance: BACLOFEN
     Indication: MUSCLE SPASMS
     Dosage: 1 TABLET IN MORNING AND 2 TABLETS AT BEDTIME , ONGOING YES
     Route: 048
     Dates: start: 20190101
  4. COPAXONE [Concomitant]
     Active Substance: GLATIRAMER ACETATE
  5. LEXAPRO [Concomitant]
     Active Substance: ESCITALOPRAM OXALATE
     Indication: ANXIETY
  6. LEXAPRO [Concomitant]
     Active Substance: ESCITALOPRAM OXALATE
     Indication: DEPRESSION
     Dosage: ONGOING YES
     Route: 048
  7. BETASERON [Concomitant]
     Active Substance: INTERFERON BETA-1B

REACTIONS (2)
  - Urinary tract infection [Recovered/Resolved]
  - Trichomoniasis [Recovered/Resolved]

NARRATIVE: CASE EVENT DATE: 20190620
